FAERS Safety Report 24023276 (Version 3)
Quarter: 2024Q3

REPORT INFORMATION
  Report Type: Report from Study
  Country: TR (occurrence: TR)
  Receive Date: 20240627
  Receipt Date: 20240710
  Transmission Date: 20241017
  Serious: No
  Sender: ROCHE
  Company Number: TR-ROCHE-3337479

PATIENT
  Age: 58 Year
  Sex: Male

DRUGS (4)
  1. ALECTINIB [Suspect]
     Active Substance: ALECTINIB
     Indication: Non-small cell lung cancer metastatic
     Route: 048
     Dates: start: 20220118
  2. CYANOCOBALAMIN [Concomitant]
     Active Substance: CYANOCOBALAMIN
     Indication: Vitamin B12 decreased
     Dosage: 1000 AMPULE
     Route: 030
     Dates: start: 20220714, end: 20221214
  3. CYANOCOBALAMIN [Concomitant]
     Active Substance: CYANOCOBALAMIN
     Dosage: 1000 AMPULE
     Route: 030
     Dates: start: 20220719, end: 20221214
  4. LORLATINIB [Concomitant]
     Active Substance: LORLATINIB
     Dates: start: 20221125, end: 20221125

REACTIONS (2)
  - Vitamin B12 deficiency [Recovering/Resolving]
  - Serum ferritin increased [Not Recovered/Not Resolved]

NARRATIVE: CASE EVENT DATE: 20220719
